FAERS Safety Report 9333599 (Version 1)
Quarter: 2013Q2

REPORT INFORMATION
  Report Type: Spontaneous
  Country: US (occurrence: US)
  Receive Date: 20130606
  Receipt Date: 20130606
  Transmission Date: 20140414
  Serious: No
  Sender: FDA-Public Use
  Company Number: US-AMGEN-USASP2013004959

PATIENT
  Age: 76 Year
  Sex: Male
  Weight: 71.2 kg

DRUGS (4)
  1. XGEVA [Suspect]
     Indication: METASTASES TO BONE
     Dosage: 120 MG, QMO
     Route: 058
     Dates: start: 20110421, end: 20130114
  2. LUPRON [Concomitant]
     Indication: PROSTATE CANCER
     Dosage: 45 MG, Q6MO
     Dates: start: 20110831
  3. FIRMAGON                           /01764801/ [Concomitant]
     Indication: PROSTATE CANCER
     Dosage: 240 DF, Q4WK
     Route: 058
     Dates: start: 20120301
  4. GLUCOCORTICOIDS [Concomitant]

REACTIONS (3)
  - Tooth disorder [Unknown]
  - Tooth infection [Not Recovered/Not Resolved]
  - Toothache [Unknown]
